FAERS Safety Report 13301832 (Version 2)
Quarter: 2017Q1

REPORT INFORMATION
  Report Type: Spontaneous
  Country: DE (occurrence: DE)
  Receive Date: 20170307
  Receipt Date: 20170320
  Transmission Date: 20170428
  Serious: Yes (Life-Threatening, Hospitalization, Other)
  Sender: FDA-Public Use
  Company Number: DE-009507513-1703DEU001037

PATIENT
  Age: 57 Year
  Sex: Male

DRUGS (1)
  1. KEYTRUDA [Suspect]
     Active Substance: PEMBROLIZUMAB
     Indication: METASTATIC MALIGNANT MELANOMA
     Dosage: UNK
     Dates: start: 201508, end: 20161118

REACTIONS (13)
  - Cardiogenic shock [Recovered/Resolved]
  - Sepsis [Unknown]
  - Septic shock [Unknown]
  - Conjunctivitis [Unknown]
  - Multiple organ dysfunction syndrome [Unknown]
  - Septic encephalopathy [Unknown]
  - Malignant neoplasm progression [Not Recovered/Not Resolved]
  - Atrial fibrillation [Unknown]
  - Pneumonia [Unknown]
  - Myocarditis [Recovered/Resolved]
  - Benign prostatic hyperplasia [Unknown]
  - Product use issue [Unknown]
  - Pericardial effusion [Recovered/Resolved]

NARRATIVE: CASE EVENT DATE: 20161031
